FAERS Safety Report 8267255-7 (Version None)
Quarter: 2012Q2

REPORT INFORMATION
  Report Type: 
  Country: None (occurrence: None)
  Receive Date: 20120404
  Receipt Date: 20120321
  Transmission Date: 20120825
  Serious: Yes (Life-Threatening)
  Sender: FDA-Public Use
  Company Number: JP-2012-14679

PATIENT
  Age: 72 Year
  Sex: Female

DRUGS (5)
  1. CALCIUM CARBONATE [Concomitant]
  2. PLETAL [Suspect]
     Indication: ISCHAEMIC STROKE
     Dosage: 100 MG MILLIGRAM(S), BID, ORAL
     Route: 048
     Dates: start: 20120311, end: 20120313
  3. CEREBROLYSIN (ALANINE, ARGININE, ASPARTIC ACID, CYSTINE, GLUTAMIC ACID [Concomitant]
  4. STIMULAN (PIRACETAM) [Concomitant]
  5. INSULIN MERIVA (INSULIN MERIVA) [Concomitant]

REACTIONS (5)
  - SWELLING FACE [None]
  - SWOLLEN TONGUE [None]
  - PHARYNGEAL OEDEMA [None]
  - LIP SWELLING [None]
  - PHARYNGEAL HYPOAESTHESIA [None]
